FAERS Safety Report 4532730-5 (Version None)
Quarter: 2004Q4

REPORT INFORMATION
  Report Type: 
  Country: None (occurrence: None)
  Receive Date: 20041220
  Receipt Date: 20041220
  Transmission Date: 20050328
  Serious: Yes (Other)
  Sender: FDA-Public Use
  Company Number: None

PATIENT
  Age: 51 Year

DRUGS (1)
  1. ULTRA  300 [Suspect]
     Dosage: 150 CC

REACTIONS (1)
  - THROAT IRRITATION [None]
